FAERS Safety Report 14967591 (Version 1)
Quarter: 2018Q2

REPORT INFORMATION
  Report Type: Spontaneous
  Country: US (occurrence: US)
  Receive Date: 20180511
  Receipt Date: 20180511
  Transmission Date: 20180711
  Serious: No
  Sender: FDA-Public Use
  Company Number: None

PATIENT
  Age: 63 Year
  Sex: Male
  Weight: 94.5 kg

DRUGS (3)
  1. COUGH MEDICINE [Concomitant]
     Active Substance: UNSPECIFIED INGREDIENT
  2. STIVARGA [Suspect]
     Active Substance: REGORAFENIB
     Indication: HEPATIC CANCER
     Dosage: ?          QUANTITY:1 DF DOSAGE FORM;?
     Route: 048
  3. MORPHINE [Concomitant]
     Active Substance: MORPHINE

REACTIONS (9)
  - Skin exfoliation [None]
  - Diarrhoea [None]
  - Dysphonia [None]
  - Blister [None]
  - Gait disturbance [None]
  - Weight decreased [None]
  - Fatigue [None]
  - Pain [None]
  - Asthenia [None]

NARRATIVE: CASE EVENT DATE: 20180115
